FAERS Safety Report 25233813 (Version 4)
Quarter: 2025Q3

REPORT INFORMATION
  Report Type: Report from Study
  Country: US (occurrence: US)
  Receive Date: 20250424
  Receipt Date: 20250908
  Transmission Date: 20251021
  Serious: No
  Sender: SUNOVION
  Company Number: US-SUMITOMO PHARMA SWITZERLAND GMBH-2025SPA004048

PATIENT
  Age: 59 Year
  Sex: Male

DRUGS (19)
  1. ORGOVYX [Suspect]
     Active Substance: RELUGOLIX
     Indication: Prostate cancer
     Dosage: 360 MG, SINGLE
     Route: 048
  2. ORGOVYX [Suspect]
     Active Substance: RELUGOLIX
     Dosage: 120 MG, QD
     Route: 048
  3. ERLEADA [Suspect]
     Active Substance: APALUTAMIDE
     Indication: Prostate cancer
     Dosage: 240 MG, QD
  4. IVERMECTIN [Concomitant]
     Active Substance: IVERMECTIN
  5. LEVOMEFOLATE CALCIUM [Concomitant]
     Active Substance: LEVOMEFOLATE CALCIUM
  6. NAPROXEN [Concomitant]
     Active Substance: NAPROXEN
  7. BERBERINE [Concomitant]
     Active Substance: BERBERINE
  8. BETA GLUCAN [Concomitant]
     Active Substance: BETA GLUCAN
  9. VITAMIN D3 [Concomitant]
     Active Substance: CHOLECALCIFEROL
  10. polifinfol Olive oil [Concomitant]
  11. QUERCETIN [Concomitant]
     Active Substance: QUERCETIN
  12. REISHI [Concomitant]
     Active Substance: REISHI
  13. HERBALS\SAW PALMETTO [Concomitant]
     Active Substance: HERBALS\SAW PALMETTO
  14. ZINC [Concomitant]
     Active Substance: ZINC
  15. VITAMIN K [Concomitant]
     Active Substance: PHYTONADIONE
  16. TAMSULOSIN [Concomitant]
     Active Substance: TAMSULOSIN
  17. VITAMIN C [Concomitant]
     Active Substance: ASCORBIC ACID
  18. Quercetin with bromelain [Concomitant]
  19. XTANDI [Concomitant]
     Active Substance: ENZALUTAMIDE

REACTIONS (9)
  - Paraesthesia [Unknown]
  - Dyspnoea [Unknown]
  - Rash [Unknown]
  - Fatigue [Unknown]
  - Asthenia [Unknown]
  - Myalgia [Unknown]
  - Depression [Unknown]
  - Arthralgia [Unknown]
  - Hot flush [Unknown]
